FAERS Safety Report 8339059-8 (Version None)
Quarter: 2012Q2

REPORT INFORMATION
  Report Type: 
  Country: None (occurrence: None)
  Receive Date: 20120502
  Receipt Date: 20120420
  Transmission Date: 20120825
  Serious: Yes (Other)
  Sender: FDA-Public Use
  Company Number: 1202-094

PATIENT
  Age: 93 Year
  Sex: Female

DRUGS (1)
  1. EYLEA [Suspect]
     Dosage: INTRAVITREAL

REACTIONS (2)
  - IRITIS [None]
  - ENDOPHTHALMITIS [None]
